FAERS Safety Report 8096175-6 (Version None)
Quarter: 2012Q1

REPORT INFORMATION
  Report Type: 
  Country: None (occurrence: None)
  Receive Date: 20120131
  Receipt Date: 20120127
  Transmission Date: 20120608
  Serious: Yes (Other)
  Sender: FDA-Public Use
  Company Number: DE-GLAXOSMITHKLINE-D0074285A

PATIENT
  Age: 75 Year
  Sex: Female

DRUGS (1)
  1. REQUIP [Suspect]
     Route: 048

REACTIONS (3)
  - PRURITUS [None]
  - VASCULITIS [None]
  - ERYTHEMA [None]
